FAERS Safety Report 8343459-X (Version None)
Quarter: 2012Q2

REPORT INFORMATION
  Report Type: 
  Country: None (occurrence: None)
  Receive Date: 20120508
  Receipt Date: 20100430
  Transmission Date: 20120825
  Serious: No
  Sender: FDA-Public Use
  Company Number: US-TEVA-2010002512

PATIENT
  Age: 67 Year
  Sex: Male
  Weight: 78.996 kg

DRUGS (6)
  1. TREANDA [Suspect]
     Route: 042
     Dates: start: 20100325
  2. DEXAMETHASONE [Concomitant]
  3. RITUXAN [Concomitant]
     Indication: NON-HODGKIN'S LYMPHOMA
  4. TREANDA [Suspect]
     Indication: NON-HODGKIN'S LYMPHOMA
     Route: 042
     Dates: start: 20100325
  5. KYTRIL [Concomitant]
  6. TREANDA [Suspect]
     Route: 042
     Dates: start: 20100325

REACTIONS (1)
  - EXTRAVASATION [None]
